FAERS Safety Report 25468260 (Version 1)
Quarter: 2025Q2

REPORT INFORMATION
  Report Type: Spontaneous
  Country: US (occurrence: None)
  Receive Date: 20250620
  Receipt Date: 20250620
  Transmission Date: 20250717
  Serious: Yes (Other)
  Sender: FDA-CTU
  Company Number: None

PATIENT
  Age: 22 Year
  Sex: Female
  Weight: 65.25 kg

DRUGS (1)
  1. DEPAKOTE ER [Suspect]
     Active Substance: DIVALPROEX SODIUM
     Indication: Mania
     Dosage: OTHER QUANTITY : 1 TABLET(S);?FREQUENCY : AT BEDTIME;?
     Route: 048
     Dates: start: 20250617, end: 20250620

REACTIONS (8)
  - Depression [None]
  - Feeling of despair [None]
  - Suicidal ideation [None]
  - Feeling abnormal [None]
  - Mania [None]
  - Paradoxical drug reaction [None]
  - Panic attack [None]
  - Affect lability [None]

NARRATIVE: CASE EVENT DATE: 20250620
